FAERS Safety Report 7990694-6 (Version None)
Quarter: 2011Q4

REPORT INFORMATION
  Report Type: 
  Country: None (occurrence: None)
  Receive Date: 20111219
  Receipt Date: 20111212
  Transmission Date: 20120403
  Serious: Yes (Hospitalization, Other)
  Sender: FDA-Public Use
  Company Number: US-PFIZER INC-2011270652

PATIENT
  Sex: Male

DRUGS (9)
  1. PRILOSEC [Concomitant]
     Dosage: 20 MG, 1X/DAY
  2. COUMADIN [Concomitant]
     Indication: DEEP VEIN THROMBOSIS
     Dosage: 7.5 MG, 1X/DAY
     Route: 048
  3. HYDROCHLOROTHIAZIDE [Concomitant]
     Indication: HYPERTENSION
     Dosage: 12.5 MG, 1X/DAY
     Route: 048
  4. MAGNESIUM OXIDE [Concomitant]
     Dosage: 400 MG, 2X/DAY
     Route: 048
  5. COUMADIN [Concomitant]
     Indication: PULMONARY EMBOLISM
  6. AVAPRO [Concomitant]
     Dosage: 300 MG, 1X/DAY
     Route: 048
  7. PRAVACHOL [Concomitant]
     Dosage: 20 MG, AT BEDTIME
     Route: 048
  8. GLIPIZIDE [Concomitant]
     Indication: TYPE 2 DIABETES MELLITUS
     Dosage: 5 MG, 1X/DAY
     Route: 048
  9. RAPAMUNE [Suspect]
     Indication: HEART TRANSPLANT
     Dosage: 2 MG, 1X/DAY
     Route: 048
     Dates: start: 20060613, end: 20111101

REACTIONS (5)
  - COLONIC POLYP [None]
  - GASTRIC NEOPLASM [None]
  - INTERSTITIAL LUNG DISEASE [None]
  - GASTRITIS [None]
  - IRON DEFICIENCY ANAEMIA [None]
